FAERS Safety Report 12450117 (Version 1)
Quarter: 2016Q2

REPORT INFORMATION
  Report Type: Spontaneous
  Country: US (occurrence: None)
  Receive Date: 20160608
  Receipt Date: 20160608
  Transmission Date: 20160815
  Serious: Yes (Hospitalization, Other)
  Sender: FDA-Public Use
  Company Number: None

PATIENT

DRUGS (1)
  1. PIOGLITAZONE. [Suspect]
     Active Substance: PIOGLITAZONE
     Indication: DRUG THERAPY
     Route: 048
     Dates: start: 2012, end: 2015

REACTIONS (2)
  - Myalgia [None]
  - Blood creatine phosphokinase increased [None]
